FAERS Safety Report 24436957 (Version 1)
Quarter: 2024Q4

REPORT INFORMATION
  Report Type: Spontaneous
  Country: IT (occurrence: IT)
  Receive Date: 20241015
  Receipt Date: 20241015
  Transmission Date: 20250114
  Serious: Yes (Death)
  Sender: UCB
  Company Number: IT-UCBSA-2024051552

PATIENT
  Age: 6 Year
  Sex: Male

DRUGS (77)
  1. LEVETIRACETAM [Suspect]
     Active Substance: LEVETIRACETAM
     Indication: Status epilepticus
     Dosage: UNK
  2. LEVETIRACETAM [Suspect]
     Active Substance: LEVETIRACETAM
     Indication: Partial seizures
  3. LEVETIRACETAM [Suspect]
     Active Substance: LEVETIRACETAM
     Indication: Epilepsy
  4. LEVETIRACETAM [Suspect]
     Active Substance: LEVETIRACETAM
     Indication: Partial seizures
  5. LEVETIRACETAM [Suspect]
     Active Substance: LEVETIRACETAM
     Indication: Tonic convulsion
  6. LEVETIRACETAM [Suspect]
     Active Substance: LEVETIRACETAM
     Indication: Off label use
  7. ACTH [Suspect]
     Active Substance: CORTICOTROPIN
     Indication: Tonic convulsion
     Dosage: UNK
  8. ACTH [Suspect]
     Active Substance: CORTICOTROPIN
     Indication: Partial seizures
  9. ACTH [Suspect]
     Active Substance: CORTICOTROPIN
     Indication: Epilepsy
  10. ACTH [Suspect]
     Active Substance: CORTICOTROPIN
     Indication: Partial seizures
  11. ACTH [Suspect]
     Active Substance: CORTICOTROPIN
     Indication: Status epilepticus
  12. VIGABATRIN [Suspect]
     Active Substance: VIGABATRIN
     Indication: Tonic convulsion
     Dosage: UNK
  13. VIGABATRIN [Suspect]
     Active Substance: VIGABATRIN
     Indication: Partial seizures
  14. VIGABATRIN [Suspect]
     Active Substance: VIGABATRIN
     Indication: Epilepsy
  15. VIGABATRIN [Suspect]
     Active Substance: VIGABATRIN
     Indication: Partial seizures
  16. VIGABATRIN [Suspect]
     Active Substance: VIGABATRIN
     Indication: Status epilepticus
  17. PHENOBARBITAL [Suspect]
     Active Substance: PHENOBARBITAL
     Indication: Tonic convulsion
     Dosage: UNK
  18. PHENOBARBITAL [Suspect]
     Active Substance: PHENOBARBITAL
     Indication: Partial seizures
  19. PHENOBARBITAL [Suspect]
     Active Substance: PHENOBARBITAL
     Indication: Epilepsy
  20. PHENOBARBITAL [Suspect]
     Active Substance: PHENOBARBITAL
     Indication: Partial seizures
  21. PHENOBARBITAL [Suspect]
     Active Substance: PHENOBARBITAL
     Indication: Status epilepticus
  22. VALPROIC ACID [Suspect]
     Active Substance: VALPROIC ACID
     Indication: Tonic convulsion
     Dosage: UNK
  23. VALPROIC ACID [Suspect]
     Active Substance: VALPROIC ACID
     Indication: Partial seizures
  24. VALPROIC ACID [Suspect]
     Active Substance: VALPROIC ACID
     Indication: Epilepsy
  25. VALPROIC ACID [Suspect]
     Active Substance: VALPROIC ACID
     Indication: Partial seizures
  26. VALPROIC ACID [Suspect]
     Active Substance: VALPROIC ACID
     Indication: Status epilepticus
  27. LAMOTRIGINE [Suspect]
     Active Substance: LAMOTRIGINE
     Indication: Tonic convulsion
     Dosage: UNK
  28. LAMOTRIGINE [Suspect]
     Active Substance: LAMOTRIGINE
     Indication: Partial seizures
  29. LAMOTRIGINE [Suspect]
     Active Substance: LAMOTRIGINE
     Indication: Epilepsy
  30. LAMOTRIGINE [Suspect]
     Active Substance: LAMOTRIGINE
     Indication: Partial seizures
  31. LAMOTRIGINE [Suspect]
     Active Substance: LAMOTRIGINE
     Indication: Status epilepticus
  32. CANNABIDIOL [Suspect]
     Active Substance: CANNABIDIOL
     Indication: Tonic convulsion
     Dosage: UNK
  33. CANNABIDIOL [Suspect]
     Active Substance: CANNABIDIOL
     Indication: Partial seizures
  34. CANNABIDIOL [Suspect]
     Active Substance: CANNABIDIOL
     Indication: Epilepsy
  35. CANNABIDIOL [Suspect]
     Active Substance: CANNABIDIOL
     Indication: Partial seizures
  36. CANNABIDIOL [Suspect]
     Active Substance: CANNABIDIOL
     Indication: Status epilepticus
  37. CLONAZEPAM [Suspect]
     Active Substance: CLONAZEPAM
     Indication: Tonic convulsion
     Dosage: UNK
  38. CLONAZEPAM [Suspect]
     Active Substance: CLONAZEPAM
     Indication: Partial seizures
  39. CLONAZEPAM [Suspect]
     Active Substance: CLONAZEPAM
     Indication: Epilepsy
  40. CLONAZEPAM [Suspect]
     Active Substance: CLONAZEPAM
     Indication: Partial seizures
  41. CLONAZEPAM [Suspect]
     Active Substance: CLONAZEPAM
     Indication: Status epilepticus
  42. CLONIDINE [Suspect]
     Active Substance: CLONIDINE
     Indication: Tonic convulsion
     Dosage: UNK
  43. CLONIDINE [Suspect]
     Active Substance: CLONIDINE
     Indication: Partial seizures
  44. CLONIDINE [Suspect]
     Active Substance: CLONIDINE
     Indication: Epilepsy
  45. CLONIDINE [Suspect]
     Active Substance: CLONIDINE
     Indication: Partial seizures
  46. CLONIDINE [Suspect]
     Active Substance: CLONIDINE
     Indication: Status epilepticus
  47. CLOBAZAM [Suspect]
     Active Substance: CLOBAZAM
     Indication: Tonic convulsion
     Dosage: UNK
  48. CLOBAZAM [Suspect]
     Active Substance: CLOBAZAM
     Indication: Partial seizures
  49. CLOBAZAM [Suspect]
     Active Substance: CLOBAZAM
     Indication: Epilepsy
  50. CLOBAZAM [Suspect]
     Active Substance: CLOBAZAM
     Indication: Partial seizures
  51. CLOBAZAM [Suspect]
     Active Substance: CLOBAZAM
     Indication: Status epilepticus
  52. DIAZEPAM [Suspect]
     Active Substance: DIAZEPAM
     Indication: Tonic convulsion
     Dosage: UNK
  53. DIAZEPAM [Suspect]
     Active Substance: DIAZEPAM
     Indication: Partial seizures
  54. DIAZEPAM [Suspect]
     Active Substance: DIAZEPAM
     Indication: Epilepsy
  55. DIAZEPAM [Suspect]
     Active Substance: DIAZEPAM
     Indication: Partial seizures
  56. DIAZEPAM [Suspect]
     Active Substance: DIAZEPAM
     Indication: Status epilepticus
  57. NITRAZEPAM [Suspect]
     Active Substance: NITRAZEPAM
     Indication: Tonic convulsion
     Dosage: UNK
  58. NITRAZEPAM [Suspect]
     Active Substance: NITRAZEPAM
     Indication: Partial seizures
  59. NITRAZEPAM [Suspect]
     Active Substance: NITRAZEPAM
     Indication: Epilepsy
  60. NITRAZEPAM [Suspect]
     Active Substance: NITRAZEPAM
     Indication: Partial seizures
  61. NITRAZEPAM [Suspect]
     Active Substance: NITRAZEPAM
     Indication: Status epilepticus
  62. TOPIRAMATE [Suspect]
     Active Substance: TOPIRAMATE
     Indication: Tonic convulsion
     Dosage: UNK
  63. TOPIRAMATE [Suspect]
     Active Substance: TOPIRAMATE
     Indication: Partial seizures
  64. TOPIRAMATE [Suspect]
     Active Substance: TOPIRAMATE
     Indication: Epilepsy
  65. TOPIRAMATE [Suspect]
     Active Substance: TOPIRAMATE
     Indication: Partial seizures
  66. TOPIRAMATE [Suspect]
     Active Substance: TOPIRAMATE
     Indication: Status epilepticus
  67. RUFINAMIDE [Suspect]
     Active Substance: RUFINAMIDE
     Indication: Tonic convulsion
     Dosage: UNK
  68. RUFINAMIDE [Suspect]
     Active Substance: RUFINAMIDE
     Indication: Partial seizures
  69. RUFINAMIDE [Suspect]
     Active Substance: RUFINAMIDE
     Indication: Epilepsy
  70. RUFINAMIDE [Suspect]
     Active Substance: RUFINAMIDE
     Indication: Partial seizures
  71. RUFINAMIDE [Suspect]
     Active Substance: RUFINAMIDE
     Indication: Status epilepticus
  72. ETHOSUXIMIDE [Suspect]
     Active Substance: ETHOSUXIMIDE
     Indication: Tonic convulsion
     Dosage: UNK
  73. ETHOSUXIMIDE [Suspect]
     Active Substance: ETHOSUXIMIDE
     Indication: Partial seizures
  74. ETHOSUXIMIDE [Suspect]
     Active Substance: ETHOSUXIMIDE
     Indication: Epilepsy
  75. ETHOSUXIMIDE [Suspect]
     Active Substance: ETHOSUXIMIDE
     Indication: Partial seizures
  76. ETHOSUXIMIDE [Suspect]
     Active Substance: ETHOSUXIMIDE
     Indication: Status epilepticus
  77. DEXMEDETOMIDINE [Concomitant]
     Active Substance: DEXMEDETOMIDINE
     Indication: Seizure
     Dosage: UNK

REACTIONS (2)
  - Multiple-drug resistance [Fatal]
  - Off label use [Unknown]
